FAERS Safety Report 8712271 (Version 2)
Quarter: 2013Q3

REPORT INFORMATION
  Report Type: Report from Study
  Country: JP (occurrence: JP)
  Receive Date: 20120808
  Receipt Date: 20130722
  Transmission Date: 20140515
  Serious: Yes (Hospitalization)
  Sender: FDA-Public Use
  Company Number: JP-BIOGENIDEC-2012BI013896

PATIENT
  Age: 41 Year
  Sex: Male

DRUGS (8)
  1. TYSABRI [Suspect]
     Indication: RELAPSING-REMITTING MULTIPLE SCLEROSIS
     Dates: start: 20120410, end: 20120410
  2. METHYCOBAL [Concomitant]
  3. GABAPEN [Concomitant]
  4. MEXETIL [Concomitant]
  5. LOXONIN [Concomitant]
     Dates: end: 20120420
  6. BONALON [Concomitant]
     Dates: end: 20120415
  7. TAKEPRON [Concomitant]
     Dates: start: 20120410, end: 20120418
  8. TAKEPRON [Concomitant]
     Dates: start: 20120217, end: 20120409

REACTIONS (2)
  - Oesophageal ulcer [Recovered/Resolved]
  - Eosinophilia [Recovered/Resolved]
